FAERS Safety Report 14845972 (Version 3)
Quarter: 2018Q3

REPORT INFORMATION
  Report Type: Spontaneous
  Country: US (occurrence: US)
  Receive Date: 20180504
  Receipt Date: 20180813
  Transmission Date: 20181010
  Serious: No
  Sender: FDA-Public Use
  Company Number: PHEH2018US017087

PATIENT
  Sex: Female
  Weight: 54.43 kg

DRUGS (2)
  1. ZOFRAN [Suspect]
     Active Substance: ONDANSETRON HYDROCHLORIDE
     Indication: HYPEREMESIS GRAVIDARUM
     Dosage: 6 MG PER 03 ML, Q6H
     Route: 042
     Dates: start: 19980909, end: 19980910
  2. ZOFRAN [Suspect]
     Active Substance: ONDANSETRON HYDROCHLORIDE
     Indication: HYPEREMESIS GRAVIDARUM
     Dosage: 4 MG, Q6H
     Route: 048
     Dates: start: 19980911, end: 19990315

REACTIONS (5)
  - Depression [Unknown]
  - Injury [Unknown]
  - Maternal exposure during pregnancy [Unknown]
  - Emotional distress [Unknown]
  - Product use in unapproved indication [Unknown]
